FAERS Safety Report 15495113 (Version 1)
Quarter: 2018Q4

REPORT INFORMATION
  Report Type: Report from Study
  Country: US (occurrence: US)
  Receive Date: 20181012
  Receipt Date: 20181012
  Transmission Date: 20190205
  Serious: Yes (Hospitalization, Other)
  Sender: FDA-Public Use
  Company Number: US-AMGEN-USASL2018140769

PATIENT
  Age: 68 Year
  Sex: Female

DRUGS (3)
  1. REPATHA [Suspect]
     Active Substance: EVOLOCUMAB
     Dosage: UNK
     Route: 065
     Dates: start: 2018, end: 20181002
  2. REPATHA [Suspect]
     Active Substance: EVOLOCUMAB
     Indication: HYPERCHOLESTEROLAEMIA
     Dosage: 140 MG, Q2WK
     Route: 065
  3. REPATHA [Suspect]
     Active Substance: EVOLOCUMAB
     Dosage: 140 MG, QMO
     Route: 065

REACTIONS (8)
  - Herpes zoster [Unknown]
  - Burning sensation [Unknown]
  - Dyspnoea [Unknown]
  - Chest pain [Unknown]
  - Joint warmth [Unknown]
  - Laboratory test abnormal [Unknown]
  - Thrombosis [Unknown]
  - Wheezing [Unknown]

NARRATIVE: CASE EVENT DATE: 2018
